FAERS Safety Report 18367177 (Version 1)
Quarter: 2020Q4

REPORT INFORMATION
  Report Type: Spontaneous
  Country: FR (occurrence: FR)
  Receive Date: 20201009
  Receipt Date: 20201009
  Transmission Date: 20210114
  Serious: Yes (Death)
  Sender: FDA-Public Use
  Company Number: FR-MYLANLABS-2020M1084971

PATIENT
  Age: 74 Year
  Sex: Female

DRUGS (2)
  1. CARBOPLATIN. [Suspect]
     Active Substance: CARBOPLATIN
     Indication: METASTATIC CARCINOMA OF THE BLADDER
     Dosage: AUC5, ON D2
  2. GEMCITABINE. [Suspect]
     Active Substance: GEMCITABINE
     Indication: METASTATIC CARCINOMA OF THE BLADDER
     Dosage: 1250 MG/M2, DAILY (D1+ D8)

REACTIONS (4)
  - Sepsis [Fatal]
  - Neutropenia [Fatal]
  - Anaemia [Fatal]
  - Thrombocytopenia [Fatal]
